FAERS Safety Report 8316606-3 (Version None)
Quarter: 2012Q2

REPORT INFORMATION
  Report Type: 
  Country: None (occurrence: None)
  Receive Date: 20120427
  Receipt Date: 20120424
  Transmission Date: 20120825
  Serious: Yes (Life-Threatening, Hospitalization)
  Sender: FDA-Public Use
  Company Number: PHHY2011CA00948

PATIENT
  Sex: Male

DRUGS (3)
  1. BLOOD TRANSFUSION, AUXILIARY PRODUCTS [Concomitant]
     Dosage: 1 U, UNK
     Dates: start: 20120407
  2. EXJADE [Suspect]
     Dosage: 500 MG DAILY
     Route: 048
  3. EXJADE [Suspect]
     Indication: MYELOFIBROSIS
     Dosage: 1500 MG, DAILY
     Route: 048
     Dates: start: 20100101

REACTIONS (4)
  - TERMINAL STATE [None]
  - RED BLOOD CELL COUNT DECREASED [None]
  - GASTROINTESTINAL HAEMORRHAGE [None]
  - MALAISE [None]
